FAERS Safety Report 24973600 (Version 1)
Quarter: 2025Q1

REPORT INFORMATION
  Report Type: Spontaneous
  Country: US (occurrence: US)
  Receive Date: 20250217
  Receipt Date: 20250217
  Transmission Date: 20250409
  Serious: No
  Sender: Haleon PLC
  Company Number: US-HALEON-2227184

PATIENT

DRUGS (1)
  1. ALLI [Suspect]
     Active Substance: ORLISTAT
     Indication: Product used for unknown indication

REACTIONS (4)
  - Illness [Unknown]
  - Suspected counterfeit product [Unknown]
  - Drug interaction [Unknown]
  - Product complaint [Unknown]
